FAERS Safety Report 11865527 (Version 3)
Quarter: 2016Q1

REPORT INFORMATION
  Report Type: Spontaneous
  Country: US (occurrence: US)
  Receive Date: 20151223
  Receipt Date: 20160225
  Transmission Date: 20160526
  Serious: No
  Sender: FDA-Public Use
  Company Number: ALCN2015US007807

PATIENT
  Sex: Female

DRUGS (3)
  1. GENTEAL MILD TO MODERATE [Suspect]
     Active Substance: HYPROMELLOSE 2910 (4000 MPA.S)
     Indication: HORDEOLUM
     Dosage: 1 GTT, BID
     Route: 047
     Dates: start: 20151201, end: 20151203
  2. GENTEAL MILD TO MODERATE [Suspect]
     Active Substance: HYPROMELLOSE 2910 (4000 MPA.S)
     Indication: DRY EYE
  3. DIVIGEL [Concomitant]
     Active Substance: ESTRADIOL
     Indication: HORMONE REPLACEMENT THERAPY
     Dosage: 1 MG, QD
     Route: 061

REACTIONS (5)
  - Diplopia [Recovering/Resolving]
  - Eye swelling [Recovering/Resolving]
  - Photophobia [Unknown]
  - Eye pain [Unknown]
  - Vision blurred [Recovering/Resolving]
